FAERS Safety Report 5095117-5 (Version None)
Quarter: 2006Q3

REPORT INFORMATION
  Report Type: 
  Country: None (occurrence: None)
  Receive Date: 20060901
  Receipt Date: 20060828
  Transmission Date: 20061208
  Serious: Yes (Hospitalization)
  Sender: FDA-Public Use
  Company Number: US-JNJFOC-20060806201

PATIENT
  Sex: Female
  Weight: 56 kg

DRUGS (4)
  1. REMICADE [Suspect]
     Indication: BEHCET'S SYNDROME
     Dosage: 4 INFUSIONS
     Route: 042
  2. PREDNISONE TAB [Concomitant]
  3. COLCHICINE [Concomitant]
  4. IMURAN [Concomitant]
     Indication: BEHCET'S SYNDROME

REACTIONS (1)
  - LEUKAEMIA [None]
